FAERS Safety Report 7093544-8 (Version None)
Quarter: 2010Q4

REPORT INFORMATION
  Report Type: 
  Country: None (occurrence: None)
  Receive Date: 20101102
  Receipt Date: 20101022
  Transmission Date: 20110411
  Serious: Yes (Death)
  Sender: FDA-Public Use
  Company Number: OPER20090066

PATIENT
  Age: 16 Year
  Sex: Female

DRUGS (2)
  1. OPANA ER [Suspect]
     Dosage: INHALATION
     Route: 055
     Dates: start: 20090214, end: 20090215
  2. XANAX [Suspect]
     Dosage: INHALATION
     Route: 055
     Dates: start: 20090214, end: 20090215

REACTIONS (3)
  - DRUG TOXICITY [None]
  - INTENTIONAL DRUG MISUSE [None]
  - WRONG TECHNIQUE IN DRUG USAGE PROCESS [None]
